APPROVED DRUG PRODUCT: NORMODYNE
Active Ingredient: LABETALOL HYDROCHLORIDE
Strength: 300MG **Federal Register determination that product was not discontinued or withdrawn for safety or effectiveness reasons**
Dosage Form/Route: TABLET;ORAL
Application: N018687 | Product #003
Applicant: SCHERING CORP SUB SCHERING PLOUGH CORP
Approved: Aug 1, 1984 | RLD: Yes | RS: No | Type: DISCN